FAERS Safety Report 24453157 (Version 2)
Quarter: 2024Q4

REPORT INFORMATION
  Report Type: Report from Study
  Country: CA (occurrence: CA)
  Receive Date: 20241017
  Receipt Date: 20241018
  Transmission Date: 20250115
  Serious: No
  Sender: ROCHE
  Company Number: CA-ROCHE-3157709

PATIENT
  Age: 65 Year
  Sex: Male

DRUGS (12)
  1. RITUXAN [Suspect]
     Active Substance: RITUXIMAB
     Indication: Autoimmune pancreatitis
     Dosage: NO PIRS RECEIVED
     Route: 042
     Dates: start: 20180508, end: 2018
  2. RITUXAN [Suspect]
     Active Substance: RITUXIMAB
     Indication: Autoimmune hepatitis
     Dosage: 1 X 1000MG
     Route: 042
     Dates: start: 20181113, end: 2020
  3. RITUXAN [Suspect]
     Active Substance: RITUXIMAB
     Indication: Autoimmune cholangitis
     Dosage: 1 X 500MG
     Route: 042
     Dates: start: 20200604, end: 20220110
  4. RITUXAN [Suspect]
     Active Substance: RITUXIMAB
     Dosage: PREVIOUS INFUSION: 24/FEB/2023
     Route: 042
     Dates: start: 20220808
  5. RITUXAN [Suspect]
     Active Substance: RITUXIMAB
     Route: 042
  6. RITUXAN [Suspect]
     Active Substance: RITUXIMAB
     Route: 042
  7. BENADRYL [Concomitant]
     Active Substance: DIPHENHYDRAMINE HYDROCHLORIDE
     Indication: Premedication
     Dosage: NO PIRS RECEIVED
  8. HYDROCORTISONE [Concomitant]
     Active Substance: HYDROCORTISONE
     Indication: Premedication
     Route: 042
     Dates: start: 20220110
  9. METFORMIN [Concomitant]
     Active Substance: METFORMIN HYDROCHLORIDE
  10. MYCOPHENOLIC ACID [Concomitant]
     Active Substance: MYCOPHENOLIC ACID
  11. PREDNISONE [Concomitant]
     Active Substance: PREDNISONE
  12. TYLENOL [Concomitant]
     Active Substance: ACETAMINOPHEN
     Indication: Premedication
     Dosage: NO PIRS RECEIVED

REACTIONS (5)
  - Heart rate decreased [Unknown]
  - Blood pressure systolic increased [Unknown]
  - Blood pressure systolic abnormal [Unknown]
  - Blood pressure diastolic increased [Unknown]
  - Oxygen saturation decreased [Unknown]

NARRATIVE: CASE EVENT DATE: 20220808
